FAERS Safety Report 25774560 (Version 1)
Quarter: 2025Q3

REPORT INFORMATION
  Report Type: Spontaneous
  Country: US (occurrence: US)
  Receive Date: 20250908
  Receipt Date: 20250908
  Transmission Date: 20251021
  Serious: Yes (Other)
  Sender: PFIZER
  Company Number: US-PFIZER INC-202500175186

PATIENT
  Age: 94 Year
  Sex: Male
  Weight: 76.2 kg

DRUGS (1)
  1. RETACRIT [Suspect]
     Active Substance: EPOETIN ALFA-EPBX
     Dates: start: 20250605

REACTIONS (10)
  - Hypertension [Unknown]
  - Headache [Not Recovered/Not Resolved]
  - Muscle twitching [Unknown]
  - Swelling of eyelid [Unknown]
  - Asthenia [Unknown]
  - Weight decreased [Unknown]
  - Rash [Unknown]
  - Dysphonia [Unknown]
  - Muscle spasms [Unknown]
  - Insomnia [Unknown]

NARRATIVE: CASE EVENT DATE: 20250801
